FAERS Safety Report 8051917-0 (Version None)
Quarter: 2012Q1

REPORT INFORMATION
  Report Type: 
  Country: None (occurrence: None)
  Receive Date: 20120118
  Receipt Date: 20120103
  Transmission Date: 20120608
  Serious: Yes (Other)
  Sender: FDA-Public Use
  Company Number: CA-JNJFOC-20120102863

PATIENT
  Sex: Female

DRUGS (1)
  1. REMICADE [Suspect]
     Indication: EXPOSURE VIA SEMEN
     Route: 042
     Dates: start: 20091201

REACTIONS (2)
  - DIABETES MELLITUS [None]
  - MATERNAL EXPOSURE DURING PREGNANCY [None]
